FAERS Safety Report 5672245-4 (Version None)
Quarter: 2008Q1

REPORT INFORMATION
  Report Type: 
  Country: None (occurrence: None)
  Receive Date: 20080319
  Receipt Date: 20080307
  Transmission Date: 20080703
  Serious: Yes (Hospitalization)
  Sender: FDA-Public Use
  Company Number: JP-AVENTIS-200810672JP

PATIENT
  Sex: Male

DRUGS (2)
  1. AMARYL [Suspect]
  2. ACE INHIBITOR NOS [Suspect]

REACTIONS (2)
  - LIP OEDEMA [None]
  - PHARYNGEAL OEDEMA [None]
